FAERS Safety Report 4469639-1 (Version None)
Quarter: 2004Q4

REPORT INFORMATION
  Report Type: 
  Country: None (occurrence: None)
  Receive Date: 20041008
  Receipt Date: 20040914
  Transmission Date: 20050328
  Serious: Yes (Life-Threatening, Hospitalization, Other)
  Sender: FDA-Public Use
  Company Number: US-MERCK-0409USA01256

PATIENT
  Age: 49 Year
  Sex: Male
  Weight: 70 kg

DRUGS (5)
  1. VIDEX [Concomitant]
     Indication: HIV INFECTION
     Route: 048
     Dates: start: 20021101
  2. CRIXIVAN [Suspect]
     Indication: HIV INFECTION
     Route: 048
     Dates: start: 19991019, end: 20040504
  3. RITONAVIR [Concomitant]
     Route: 048
     Dates: start: 19991001, end: 20040501
  4. SEPTRA DS [Concomitant]
     Indication: PROPHYLAXIS
     Route: 048
     Dates: start: 19991001
  5. VIREAD [Concomitant]
     Indication: HIV INFECTION
     Route: 048
     Dates: start: 20021101

REACTIONS (3)
  - BLOOD GLUCOSE INCREASED [None]
  - PNEUMONIA [None]
  - RENAL FAILURE [None]
